FAERS Safety Report 4616708-9 (Version None)
Quarter: 2005Q1

REPORT INFORMATION
  Report Type: 
  Country: None (occurrence: None)
  Receive Date: 20050321
  Receipt Date: 20050314
  Transmission Date: 20050727
  Serious: No
  Sender: FDA-Public Use
  Company Number: 2005UW04094

PATIENT
  Age: 32 Year
  Sex: Female
  Weight: 90 kg

DRUGS (1)
  1. ZOLADEX [Suspect]
     Indication: LEIOMYOMA
     Dosage: 3.6 MG SQ
     Route: 058
     Dates: start: 20040901, end: 20041201

REACTIONS (10)
  - AMENORRHOEA [None]
  - DEGENERATION OF UTERINE FIBROID [None]
  - DIZZINESS [None]
  - FLATULENCE [None]
  - HEADACHE [None]
  - HOT FLUSH [None]
  - NAUSEA [None]
  - OEDEMA PERIPHERAL [None]
  - SARCOMATOSIS [None]
  - WEIGHT INCREASED [None]
